FAERS Safety Report 18258246 (Version 1)
Quarter: 2020Q3

REPORT INFORMATION
  Report Type: Spontaneous
  Country: US (occurrence: US)
  Receive Date: 20200911
  Receipt Date: 20200911
  Transmission Date: 20201103
  Serious: Yes (Hospitalization)
  Sender: FDA-Public Use
  Company Number: US-TARO-2020TAR01447

PATIENT
  Age: 9 Year
  Sex: Male

DRUGS (8)
  1. PREDNISOLONE ACETATE. [Suspect]
     Active Substance: PREDNISOLONE ACETATE
     Indication: EYE ULCER
     Dosage: UNK
  2. CEFTRIAXONE. [Suspect]
     Active Substance: CEFTRIAXONE
     Indication: PNEUMONIA
     Dosage: 50 MG/KG, BID, TWICE A DAY
     Route: 065
  3. XEROFORM [Suspect]
     Active Substance: BISMUTH TRIBROMOPHENATE
     Indication: BLISTER
     Dosage: UNK
     Route: 065
  4. PREDNISOLONE ACETATE. [Suspect]
     Active Substance: PREDNISOLONE ACETATE
     Indication: CORNEAL ABRASION
  5. ERYTHROMYCIN. [Suspect]
     Active Substance: ERYTHROMYCIN
     Indication: EYE ULCER
     Dosage: UNK
     Route: 065
  6. BACITRACIN. [Suspect]
     Active Substance: BACITRACIN
     Indication: BLISTER
     Dosage: UNK, DRESSING TO INTACT BLISTERS
     Route: 065
  7. AZITHROMYCIN ANHYDROUS. [Suspect]
     Active Substance: AZITHROMYCIN ANHYDROUS
     Indication: PNEUMONIA
     Dosage: 5 MG/KG, QD
     Route: 065
  8. ERYTHROMYCIN. [Suspect]
     Active Substance: ERYTHROMYCIN
     Indication: CORNEAL ABRASION

REACTIONS (1)
  - Therapeutic product effect incomplete [Unknown]
